FAERS Safety Report 13279113 (Version 1)
Quarter: 2017Q1

REPORT INFORMATION
  Report Type: Spontaneous
  Country: US (occurrence: US)
  Receive Date: 20170228
  Receipt Date: 20170228
  Transmission Date: 20170428
  Serious: Yes (Other)
  Sender: FDA-Public Use
  Company Number: US-ALLERGAN-1707164US

PATIENT
  Age: 73 Year
  Sex: Female

DRUGS (1)
  1. ARMOUR THYROID [Suspect]
     Active Substance: THYROID, PORCINE
     Indication: THYROID DISORDER
     Dosage: UNK
     Route: 048
     Dates: start: 2007, end: 20170219

REACTIONS (6)
  - Spinal column injury [Not Recovered/Not Resolved]
  - Drug dose omission [Unknown]
  - Stress [Unknown]
  - Headache [Not Recovered/Not Resolved]
  - Nervousness [Not Recovered/Not Resolved]
  - Fall [Not Recovered/Not Resolved]

NARRATIVE: CASE EVENT DATE: 201701
